FAERS Safety Report 7459489-6 (Version None)
Quarter: 2011Q2

REPORT INFORMATION
  Report Type: 
  Country: None (occurrence: None)
  Receive Date: 20110505
  Receipt Date: 20110425
  Transmission Date: 20111010
  Serious: Yes (Hospitalization, Other)
  Sender: FDA-Public Use
  Company Number: US-US-EMD SERONO, INC.-7056224

PATIENT
  Sex: Female

DRUGS (2)
  1. STEROIDS [Suspect]
  2. REBIF [Suspect]
     Indication: MULTIPLE SCLEROSIS
     Dates: end: 20110311

REACTIONS (4)
  - SUICIDAL BEHAVIOUR [None]
  - BIPOLAR DISORDER [None]
  - PSYCHOTIC DISORDER [None]
  - MANIA [None]
